FAERS Safety Report 8987964 (Version 2)
Quarter: 2013Q1

REPORT INFORMATION
  Report Type: Report from Study
  Country: AU (occurrence: AU)
  Receive Date: 20121227
  Receipt Date: 20130315
  Transmission Date: 20140127
  Serious: Yes (Other)
  Sender: FDA-Public Use
  Company Number: AU-VERTEX PHARMACEUTICALS INC.-2012-026637

PATIENT
  Age: 60 None
  Sex: Male

DRUGS (3)
  1. VX-950 (TELAPREVIR) [Suspect]
     Indication: PRODUCT USED FOR UNKNOWN INDICATION
     Dosage: UNK
     Route: 048
     Dates: start: 20120829, end: 20121022
  2. PEGINTERFERON ALFA [Concomitant]
     Dates: start: 20120829
  3. RIBAVIRIN [Concomitant]
     Dates: start: 20120829

REACTIONS (2)
  - Rash maculo-papular [Recovered/Resolved]
  - Swelling face [Recovered/Resolved]
